FAERS Safety Report 25230435 (Version 1)
Quarter: 2025Q2

REPORT INFORMATION
  Report Type: Report from Study
  Country: CA (occurrence: CA)
  Receive Date: 20250423
  Receipt Date: 20250423
  Transmission Date: 20250717
  Serious: Yes (Hospitalization, Other)
  Sender: TAKEDA
  Company Number: CA-TAKEDA-2023TUS053504

PATIENT
  Sex: Male

DRUGS (10)
  1. VEDOLIZUMAB [Suspect]
     Active Substance: VEDOLIZUMAB
     Indication: Crohn^s disease
  2. VEDOLIZUMAB [Suspect]
     Active Substance: VEDOLIZUMAB
     Dosage: 300 MILLIGRAM, Q4WEEKS
     Dates: start: 20240618
  3. VEDOLIZUMAB [Suspect]
     Active Substance: VEDOLIZUMAB
     Indication: Crohn^s disease
     Dosage: UNK UNK, Q2WEEKS
     Dates: start: 20230808
  4. VEDOLIZUMAB [Suspect]
     Active Substance: VEDOLIZUMAB
     Dosage: 108 MILLIGRAM, Q2WEEKS
     Dates: start: 2024
  5. VEDOLIZUMAB [Suspect]
     Active Substance: VEDOLIZUMAB
     Dosage: 108 MILLIGRAM, Q2WEEKS
  6. MESALAMINE [Concomitant]
     Active Substance: MESALAMINE
  7. PREDNISONE [Concomitant]
     Active Substance: PREDNISONE
  8. CALCIUM [Concomitant]
     Active Substance: CALCIUM
  9. VITAMIN B1 [Concomitant]
     Active Substance: THIAMINE HYDROCHLORIDE
  10. B12 [Concomitant]

REACTIONS (11)
  - Coronary artery disease [Unknown]
  - Haematochezia [Unknown]
  - Swelling face [Unknown]
  - Rectal tenesmus [Unknown]
  - Faecal volume decreased [Unknown]
  - Diarrhoea [Unknown]
  - Frequent bowel movements [Unknown]
  - Abdominal pain [Unknown]
  - Blood potassium decreased [Unknown]
  - Constipation [Unknown]
  - Arthralgia [Unknown]
